FAERS Safety Report 18208576 (Version 1)
Quarter: 2020Q3

REPORT INFORMATION
  Report Type: Spontaneous
  Country: US (occurrence: US)
  Receive Date: 20200827
  Receipt Date: 20200827
  Transmission Date: 20201103
  Serious: Yes (Other)
  Sender: FDA-Public Use
  Company Number: 3004932373-2020-00005

PATIENT
  Age: 38 Year
  Sex: Female
  Weight: 84.82 kg

DRUGS (1)
  1. CHLORAPREP [Suspect]
     Active Substance: CHLORHEXIDINE GLUCONATE\ISOPROPYL ALCOHOL

REACTIONS (2)
  - Application site burn [None]
  - Chemical burn of skin [None]

NARRATIVE: CASE EVENT DATE: 20200731
